FAERS Safety Report 7966990-5 (Version None)
Quarter: 2011Q4

REPORT INFORMATION
  Report Type: 
  Country: None (occurrence: None)
  Receive Date: 20111209
  Receipt Date: 20111129
  Transmission Date: 20120403
  Serious: Yes (Other)
  Sender: FDA-Public Use
  Company Number: IL-JNJFOC-20111112372

PATIENT
  Age: 48 Year
  Sex: Female

DRUGS (4)
  1. AHISTON [Concomitant]
     Indication: PREMEDICATION
     Route: 065
  2. HYDROCORTISONE [Concomitant]
     Indication: PREMEDICATION
     Route: 065
  3. REMICADE [Suspect]
     Indication: CROHN'S DISEASE
     Route: 042
     Dates: start: 20110524
  4. ACETAMINOPHEN [Concomitant]
     Indication: PREMEDICATION
     Route: 065

REACTIONS (3)
  - URTICARIA [None]
  - SUFFOCATION FEELING [None]
  - INFUSION RELATED REACTION [None]
